FAERS Safety Report 6287816-4 (Version None)
Quarter: 2009Q3

REPORT INFORMATION
  Report Type: 
  Country: None (occurrence: None)
  Receive Date: 20090729
  Receipt Date: 20090721
  Transmission Date: 20100115
  Serious: Yes (Hospitalization, Other)
  Sender: FDA-Public Use
  Company Number: US-BIOGENIDEC-2009BI014788

PATIENT
  Age: 58 Year
  Sex: Male

DRUGS (3)
  1. AVONEX [Suspect]
     Indication: MULTIPLE SCLEROSIS
     Route: 030
     Dates: start: 20081001, end: 20090101
  2. AVONEX [Suspect]
     Route: 030
     Dates: start: 20081001, end: 20090101
  3. MEDICATIONS [NOS] [Concomitant]
     Indication: DRUG USE FOR UNKNOWN INDICATION

REACTIONS (2)
  - MALIGNANT MELANOMA [None]
  - PERIVASCULAR DERMATITIS [None]
